FAERS Safety Report 16838933 (Version 2)
Quarter: 2019Q4

REPORT INFORMATION
  Report Type: Report from Study
  Country: CA (occurrence: CA)
  Receive Date: 20190923
  Receipt Date: 20191122
  Transmission Date: 20200122
  Serious: Yes (Life-Threatening, Other)
  Sender: FDA-Public Use
  Company Number: CA-GLAXOSMITHKLINE-CA2019AMR129487

PATIENT
  Age: 40 Year
  Sex: Female

DRUGS (6)
  1. MEPOLIZUMAB [Suspect]
     Active Substance: MEPOLIZUMAB
     Indication: ASTHMA
     Dosage: 100 MG, Z, MONTHLY
     Route: 042
     Dates: start: 20170513
  2. PREDNISONE. [Suspect]
     Active Substance: PREDNISONE
     Indication: PRODUCT USED FOR UNKNOWN INDICATION
     Dosage: 30 MG, QD
     Dates: start: 201501
  3. MEPOLIZUMAB [Suspect]
     Active Substance: MEPOLIZUMAB
     Dosage: 100 MG, Z, MONTHLY
     Route: 042
  4. SYMBICORT [Suspect]
     Active Substance: BUDESONIDE\FORMOTEROL FUMARATE DIHYDRATE
     Indication: PRODUCT USED FOR UNKNOWN INDICATION
     Dosage: UNK
     Dates: start: 201501
  5. RITUXIMAB. [Suspect]
     Active Substance: RITUXIMAB
     Indication: PRODUCT USED FOR UNKNOWN INDICATION
     Dosage: UNK
  6. MEPOLIZUMAB [Suspect]
     Active Substance: MEPOLIZUMAB
     Dosage: 100 MG, Z, MONTHLY
     Route: 042

REACTIONS (14)
  - Dyspnoea [Unknown]
  - Nasopharyngitis [Unknown]
  - Eosinophilic granulomatosis with polyangiitis [Unknown]
  - Hypertension [Unknown]
  - Weight increased [Unknown]
  - Sinusitis [Unknown]
  - Heart rate increased [Unknown]
  - Asthma [Unknown]
  - Steroid diabetes [Unknown]
  - Infection [Unknown]
  - Respiratory symptom [Unknown]
  - Incorrect product administration duration [Unknown]
  - Impaired quality of life [Unknown]
  - Apparent life threatening event [Unknown]

NARRATIVE: CASE EVENT DATE: 20190705
